FAERS Safety Report 10354451 (Version 2)
Quarter: 2014Q3

REPORT INFORMATION
  Report Type: Spontaneous
  Country: US (occurrence: US)
  Receive Date: 20140731
  Receipt Date: 20140910
  Transmission Date: 20150326
  Serious: No
  Sender: FDA-Public Use
  Company Number: US-PFIZER INC-2014212564

PATIENT
  Sex: Male

DRUGS (1)
  1. CHANTIX [Suspect]
     Active Substance: VARENICLINE TARTRATE
     Dosage: UNK

REACTIONS (8)
  - Myalgia [Unknown]
  - Vision blurred [Unknown]
  - Nausea [Unknown]
  - Headache [Unknown]
  - Agitation [Unknown]
  - Musculoskeletal stiffness [Unknown]
  - Chest discomfort [Unknown]
  - Dizziness [Unknown]
